FAERS Safety Report 6770423-4 (Version None)
Quarter: 2010Q2

REPORT INFORMATION
  Report Type: 
  Country: None (occurrence: None)
  Receive Date: 20100615
  Receipt Date: 20100607
  Transmission Date: 20101027
  Serious: Yes (Other)
  Sender: FDA-Public Use
  Company Number: CA-ASTRAZENECA-2010SE27190

PATIENT
  Age: 71 Year
  Sex: Male
  Weight: 68 kg

DRUGS (11)
  1. CRESTOR [Suspect]
     Route: 048
  2. OMEPRAZOLE [Concomitant]
     Route: 065
  3. RAMIPRIL [Concomitant]
     Route: 065
  4. METOPROLOL TARTRATE [Concomitant]
     Route: 065
  5. ALLOPURINOL [Concomitant]
     Route: 065
  6. ELTROXIN [Concomitant]
     Route: 065
  7. OXYCODONE HCL AND ACETAMINOPHEN [Concomitant]
     Route: 065
  8. LORAZEPAM [Concomitant]
     Route: 065
  9. NORVASC [Concomitant]
     Route: 065
  10. PLAVIX [Concomitant]
     Route: 065
  11. WARFARIN [Concomitant]
     Route: 065

REACTIONS (3)
  - ASTHENIA [None]
  - GAIT DISTURBANCE [None]
  - MOVEMENT DISORDER [None]
